FAERS Safety Report 12323462 (Version 19)
Quarter: 2018Q2

REPORT INFORMATION
  Report Type: Spontaneous
  Country: US (occurrence: US)
  Receive Date: 20160502
  Receipt Date: 20180611
  Transmission Date: 20180711
  Serious: Yes (Hospitalization, Other)
  Sender: FDA-Public Use
  Company Number: US-PFIZER INC-2016237347

PATIENT
  Age: 61 Year
  Sex: Female
  Weight: 63.49 kg

DRUGS (11)
  1. IBRANCE [Suspect]
     Active Substance: PALBOCICLIB
     Indication: BREAST CANCER METASTATIC
     Dosage: 125 MG, CYCLIC (D1-D21 Q28D)
     Route: 048
     Dates: start: 20160415, end: 20160503
  2. IBRANCE [Suspect]
     Active Substance: PALBOCICLIB
     Dosage: 100 MG, CYCLIC (D1-D21 Q28D)
     Route: 048
     Dates: start: 20160912
  3. IBRANCE [Suspect]
     Active Substance: PALBOCICLIB
     Dosage: 100 MG, CYCLIC (D1-D21 Q28D)
     Route: 048
     Dates: end: 20170220
  4. IBRANCE [Suspect]
     Active Substance: PALBOCICLIB
     Dosage: 100 MG, CYCLIC (D1-D21 Q28D)
     Route: 048
     Dates: end: 20161206
  5. IBRANCE [Suspect]
     Active Substance: PALBOCICLIB
     Dosage: 75 MG, CYCLIC (DAYS 1-21 Q28 DAYS)
     Route: 048
  6. IBRANCE [Suspect]
     Active Substance: PALBOCICLIB
     Dosage: 75 MG, CYCLIC (D1-21 Q28 DAYS)
     Route: 048
     Dates: start: 20160415, end: 201805
  7. IBRANCE [Suspect]
     Active Substance: PALBOCICLIB
     Dosage: 75 MG, CYCLIC (DAYS 1-21 Q28 DAYS)
     Route: 048
     Dates: start: 20160415
  8. IBRANCE [Suspect]
     Active Substance: PALBOCICLIB
     Dosage: 75 MG, CYCLIC (D1-D21 Q28D)
     Route: 048
  9. IBRANCE [Suspect]
     Active Substance: PALBOCICLIB
     Dosage: 75 MG, CYCLIC (D1-D21 Q28D)
     Route: 048
     Dates: start: 20170328
  10. IBRANCE [Suspect]
     Active Substance: PALBOCICLIB
     Dosage: 75 MG, CYCLIC (DAYS 1-21 Q28 DAYS)
     Route: 048
  11. IBRANCE [Suspect]
     Active Substance: PALBOCICLIB
     Dosage: 75 MG, CYCLIC (D1-21 Q28 DAYS)
     Route: 048
     Dates: start: 20160415

REACTIONS (29)
  - Hypotension [Unknown]
  - Urinary tract infection [Recovered/Resolved]
  - Decreased appetite [Unknown]
  - Malaise [Unknown]
  - Bronchitis [Unknown]
  - Loss of consciousness [Unknown]
  - Seizure [Unknown]
  - Blood potassium decreased [Unknown]
  - Rash [Unknown]
  - Cholelithiasis [Unknown]
  - Pain [Unknown]
  - Skin lesion [Unknown]
  - Fatigue [Recovering/Resolving]
  - Arthropathy [Unknown]
  - Pneumonia [Unknown]
  - Overdose [Unknown]
  - Asthenia [Recovering/Resolving]
  - Drug intolerance [Unknown]
  - Pain in extremity [Unknown]
  - Nausea [Recovering/Resolving]
  - Vomiting [Not Recovered/Not Resolved]
  - Skin burning sensation [Unknown]
  - Nervousness [Unknown]
  - Dizziness [Unknown]
  - Altered state of consciousness [Unknown]
  - Diarrhoea [Unknown]
  - Fall [Unknown]
  - Neoplasm progression [Unknown]
  - Hypersomnia [Unknown]

NARRATIVE: CASE EVENT DATE: 20161206
